FAERS Safety Report 10300783 (Version 1)
Quarter: 2014Q3

REPORT INFORMATION
  Report Type: Report from Study
  Country: US (occurrence: US)
  Receive Date: 20140714
  Receipt Date: 20140714
  Transmission Date: 20150326
  Serious: Yes (Other)
  Sender: FDA-Public Use
  Company Number: US-ROCHE-1433177

PATIENT
  Sex: Male
  Weight: 61.1 kg

DRUGS (1)
  1. NUTROPIN AQ [Suspect]
     Active Substance: SOMATROPIN
     Indication: BODY HEIGHT BELOW NORMAL
     Route: 058

REACTIONS (6)
  - Limb asymmetry [Unknown]
  - Eyelid ptosis [Unknown]
  - Tenderness [Unknown]
  - Acanthosis [Unknown]
  - Tibia fracture [Unknown]
  - Overweight [Unknown]
